FAERS Safety Report 4934997-8 (Version None)
Quarter: 2006Q1

REPORT INFORMATION
  Report Type: 
  Country: None (occurrence: None)
  Receive Date: 20060127
  Receipt Date: 20051222
  Transmission Date: 20060701
  Serious: Yes (Other)
  Sender: FDA-Public Use
  Company Number: 2005173024

PATIENT
  Age: 82 Year
  Sex: Female
  Weight: 54.8852 kg

DRUGS (2)
  1. LYRICA [Suspect]
     Indication: PAIN
     Dosage: 150 MG (75 MG, 2 IN 1 D)
     Dates: start: 20051219, end: 20051219
  2. HYDROCODONE BITARTRATE [Concomitant]

REACTIONS (2)
  - COORDINATION ABNORMAL [None]
  - TREMOR [None]
